FAERS Safety Report 5116370-5 (Version None)
Quarter: 2006Q3

REPORT INFORMATION
  Report Type: 
  Country: None (occurrence: None)
  Receive Date: 20060928
  Receipt Date: 20060605
  Transmission Date: 20061208
  Serious: Yes (Disabling, Other)
  Sender: FDA-Public Use
  Company Number: US-BAYER-200613952BWH

PATIENT
  Age: 72 Year
  Sex: Male
  Weight: 95 kg

DRUGS (6)
  1. LEVITRA [Suspect]
     Indication: ERECTILE DYSFUNCTION
     Route: 048
     Dates: start: 20060421, end: 20060421
  2. AZOPT [Concomitant]
     Route: 047
  3. XALATAN [Concomitant]
     Route: 047
  4. TIMOPTIC [Concomitant]
     Route: 047
  5. TIMOPTIC [Concomitant]
     Route: 047
     Dates: start: 20060501
  6. NEVANAC [Concomitant]
     Dates: end: 20060427

REACTIONS (16)
  - ACQUIRED DIAPHRAGMATIC EVENTRATION [None]
  - ACTIVITIES OF DAILY LIVING IMPAIRED [None]
  - BLINDNESS UNILATERAL [None]
  - IMPAIRED DRIVING ABILITY [None]
  - LYMPHOCYTE PERCENTAGE DECREASED [None]
  - MEAN CELL HAEMOGLOBIN INCREASED [None]
  - NASOPHARYNGITIS [None]
  - NEUTROPHIL PERCENTAGE INCREASED [None]
  - OPTIC ISCHAEMIC NEUROPATHY [None]
  - OPTIC NEURITIS RETROBULBAR [None]
  - RED BLOOD CELL COUNT DECREASED [None]
  - TEMPORAL ARTERITIS [None]
  - UPPER RESPIRATORY TRACT INFECTION [None]
  - VISION BLURRED [None]
  - VISUAL ACUITY REDUCED [None]
  - WHITE BLOOD CELL COUNT INCREASED [None]
